FAERS Safety Report 9017314 (Version 2)
Quarter: 2013Q1

REPORT INFORMATION
  Report Type: Spontaneous
  Country: US (occurrence: US)
  Receive Date: 20130117
  Receipt Date: 20130201
  Transmission Date: 20140127
  Serious: No
  Sender: FDA-Public Use
  Company Number: US-PFIZER INC-2013017417

PATIENT
  Age: 60 Year
  Sex: Male
  Weight: 81.63 kg

DRUGS (6)
  1. ALPRAZOLAM [Suspect]
     Indication: ANXIETY
     Dosage: 0.25 MG, AS NEEDED
     Route: 048
  2. DILANTIN [Suspect]
     Dosage: UNK
  3. PHENOBARBITAL [Suspect]
     Dosage: UNK
  4. ZANTAC [Suspect]
     Dosage: UNK
  5. PLAVIX [Suspect]
     Dosage: UNK
  6. VYTORIN [Suspect]
     Dosage: UNK

REACTIONS (1)
  - Aggression [Unknown]
